FAERS Safety Report 5241235-8 (Version None)
Quarter: 2007Q1

REPORT INFORMATION
  Report Type: 
  Country: None (occurrence: None)
  Receive Date: 20070212
  Receipt Date: 20070212
  Transmission Date: 20070707
  Serious: Yes (Hospitalization)
  Sender: FDA-Public Use
  Company Number: None

PATIENT
  Age: 64 Year
  Sex: Male

DRUGS (8)
  1. HYDROCHLOROTHIAZIDE [Suspect]
     Indication: HYPERTENSION
     Dosage: ONCE
     Dates: start: 20061011, end: 20061011
  2. ASPIRIN [Concomitant]
  3. CYCLOBENZAPRINE HCL [Concomitant]
  4. DILTIAZEM [Concomitant]
  5. FLUOXETINE HCL [Concomitant]
  6. LACRILUBE [Concomitant]
  7. LEVOTHYROXINE SODIUM [Concomitant]
  8. METHYLCELLULOSE [Concomitant]

REACTIONS (4)
  - ACUTE PULMONARY OEDEMA [None]
  - DYSPNOEA [None]
  - HYPOTENSION [None]
  - HYPOXIA [None]
